FAERS Safety Report 10226752 (Version 2)
Quarter: 2014Q2

REPORT INFORMATION
  Report Type: Spontaneous
  Country: US (occurrence: US)
  Receive Date: 20140610
  Receipt Date: 20140620
  Transmission Date: 20141212
  Serious: Yes (Other)
  Sender: FDA-Public Use
  Company Number: US-ROCHE-1415319

PATIENT
  Age: 57 Year
  Sex: Female

DRUGS (3)
  1. XOLAIR [Suspect]
     Indication: ASTHMA
     Route: 058
     Dates: start: 20140506
  2. XOLAIR [Suspect]
     Route: 065
     Dates: start: 20140512
  3. BYSTOLIC [Concomitant]

REACTIONS (1)
  - Urticaria [Recovered/Resolved]
